FAERS Safety Report 24256244 (Version 2)
Quarter: 2024Q4

REPORT INFORMATION
  Report Type: Spontaneous
  Country: US (occurrence: US)
  Receive Date: 20240828
  Receipt Date: 20241023
  Transmission Date: 20250114
  Serious: Yes (Other)
  Sender: GLENMARK
  Company Number: US-GLENMARK PHARMACEUTICALS-2024GMK093372

PATIENT

DRUGS (2)
  1. OXCARBAZEPINE [Suspect]
     Active Substance: OXCARBAZEPINE
     Indication: Trigeminal neuralgia
     Dosage: UNK
     Route: 048
  2. OXCARBAZEPINE [Suspect]
     Active Substance: OXCARBAZEPINE
     Dosage: 2 DOSAGE FORM, QID ( TWO TABLETS, TWICE DAILY, IN THE MORNING AND AT NIGHT)
     Route: 048

REACTIONS (6)
  - Tongue discomfort [Unknown]
  - Product use in unapproved indication [Unknown]
  - Product storage error [Unknown]
  - Suspected product quality issue [Unknown]
  - Product contamination physical [Unknown]
  - Product container seal issue [Unknown]

NARRATIVE: CASE EVENT DATE: 20240813
